FAERS Safety Report 8328666-4 (Version None)
Quarter: 2012Q2

REPORT INFORMATION
  Report Type: 
  Country: None (occurrence: None)
  Receive Date: 20120502
  Receipt Date: 20120424
  Transmission Date: 20120825
  Serious: Yes (Hospitalization, Other)
  Sender: FDA-Public Use
  Company Number: US-BAYER-2011-036222

PATIENT
  Age: 34 Year
  Sex: Female
  Weight: 105.67 kg

DRUGS (5)
  1. PROTONIX [Concomitant]
  2. YASMIN [Suspect]
     Indication: PREMENSTRUAL SYNDROME
     Dosage: UNK
     Dates: start: 20030430, end: 20050623
  3. YAZ [Suspect]
     Indication: PREMENSTRUAL SYNDROME
     Dosage: UNK
     Dates: start: 20080604, end: 20090803
  4. WELLBUTRIN [Concomitant]
     Dosage: UNK
  5. IRON SUPPLEMENTS [Concomitant]
     Dosage: UNK
     Dates: start: 19980101

REACTIONS (6)
  - ABDOMINAL PAIN [None]
  - CHOLECYSTITIS CHRONIC [None]
  - ABDOMINAL WALL HAEMATOMA [None]
  - ANXIETY [None]
  - CHOLELITHIASIS [None]
  - EMOTIONAL DISTRESS [None]
